FAERS Safety Report 7249356-5 (Version None)
Quarter: 2011Q1

REPORT INFORMATION
  Report Type: 
  Country: None (occurrence: None)
  Receive Date: 20110128
  Receipt Date: 20101123
  Transmission Date: 20110831
  Serious: Yes (Other)
  Sender: FDA-Public Use
  Company Number: US-BAYER-201032416NA

PATIENT
  Sex: Female
  Weight: 68 kg

DRUGS (6)
  1. CRESTOR [Concomitant]
  2. CYMBALTA [Concomitant]
     Indication: ANXIETY
     Dates: start: 20100101
  3. IBUPROFEN [Concomitant]
  4. CYMBALTA [Concomitant]
     Indication: DEPRESSION
  5. YAZ [Suspect]
     Indication: CONTRACEPTION
     Route: 048
     Dates: start: 20080801, end: 20090915
  6. LEXAPRO [Concomitant]
     Indication: DEPRESSION
     Dosage: 10 MG (DAILY DOSE), QD,
     Dates: start: 20020101, end: 20090615

REACTIONS (5)
  - CHOLELITHIASIS [None]
  - CHOLECYSTITIS CHRONIC [None]
  - GALLBLADDER CHOLESTEROLOSIS [None]
  - DYSPEPSIA [None]
  - CHEST PAIN [None]
